FAERS Safety Report 19781621 (Version 3)
Quarter: 2021Q4

REPORT INFORMATION
  Report Type: Report from Study
  Country: US (occurrence: US)
  Receive Date: 20210902
  Receipt Date: 20211103
  Transmission Date: 20220303
  Serious: Yes (Hospitalization)
  Sender: FDA-Public Use
  Company Number: US-PFIZER INC-202101110858

PATIENT
  Age: 18 Year
  Sex: Male
  Weight: 66.1 kg

DRUGS (6)
  1. VINCRISTINE SULFATE [Suspect]
     Active Substance: VINCRISTINE SULFATE
     Indication: Acute lymphocytic leukaemia
     Dosage: 2 MG, Q28 DAYS
     Route: 042
     Dates: start: 20191204
  2. METHOTREXATE SODIUM [Suspect]
     Active Substance: METHOTREXATE SODIUM
     Indication: Acute lymphocytic leukaemia
     Dosage: 15 MG (D1)
     Route: 037
     Dates: start: 20191120
  3. METHOTREXATE [Suspect]
     Active Substance: METHOTREXATE
     Indication: Acute lymphocytic leukaemia
     Dosage: 35 MG, Q7 DAYS, TABLET
     Route: 048
     Dates: start: 20200902, end: 20210818
  4. RUXOLITINIB [Suspect]
     Active Substance: RUXOLITINIB
     Indication: Acute lymphocytic leukaemia
     Dosage: 85 MG, BID (14 DAYS ON/14 DAYS OFF), TABLET
     Route: 048
     Dates: start: 20191120
  5. MERCAPTOPURINE [Suspect]
     Active Substance: MERCAPTOPURINE
     Indication: Acute lymphocytic leukaemia
     Dosage: 75 MILLIGRAM (MON-FRI) / 50 MILLIGRAM (SAT-SUN), QHS
     Route: 048
     Dates: start: 20200131, end: 20210816
  6. PREDNISONE [Suspect]
     Active Substance: PREDNISONE
     Indication: Acute lymphocytic leukaemia
     Dosage: 35 MG, BID (X5 DAYS INTERMITTENT) TABLET
     Route: 048
     Dates: start: 20200826

REACTIONS (4)
  - Febrile neutropenia [Recovered/Resolved]
  - Enterovirus infection [Recovered/Resolved]
  - Rhinovirus infection [Recovered/Resolved]
  - Anaemia [Recovered/Resolved]

NARRATIVE: CASE EVENT DATE: 20210816
